FAERS Safety Report 11451570 (Version 3)
Quarter: 2015Q3

REPORT INFORMATION
  Report Type: Report from Study
  Country: US (occurrence: US)
  Receive Date: 20150903
  Receipt Date: 20150914
  Transmission Date: 20151125
  Serious: Yes (Hospitalization, Other)
  Sender: FDA-Public Use
  Company Number: US-ABBVIE-15K-163-1453138-00

PATIENT
  Age: 54 Year
  Sex: Female

DRUGS (1)
  1. HUMIRA [Suspect]
     Active Substance: ADALIMUMAB
     Indication: RHEUMATOID ARTHRITIS
     Route: 058
     Dates: start: 20150623

REACTIONS (5)
  - Fall [Recovering/Resolving]
  - Pulmonary mass [Unknown]
  - Hyperglycaemia [Recovering/Resolving]
  - Pneumonia [Unknown]
  - Tuberculosis [Unknown]

NARRATIVE: CASE EVENT DATE: 2015
